FAERS Safety Report 7952437-1 (Version None)
Quarter: 2011Q4

REPORT INFORMATION
  Report Type: 
  Country: None (occurrence: None)
  Receive Date: 20111201
  Receipt Date: 20111116
  Transmission Date: 20120403
  Serious: Yes (Other)
  Sender: FDA-Public Use
  Company Number: JP-GLAXOSMITHKLINE-B0763912A

PATIENT
  Sex: Female

DRUGS (7)
  1. SEROQUEL [Concomitant]
     Dosage: 50MG PER DAY
     Route: 048
     Dates: start: 20110304
  2. U PAN [Concomitant]
     Dosage: 2MG PER DAY
     Route: 048
     Dates: start: 20110304
  3. AMLODIPINE [Concomitant]
     Dosage: 5MG PER DAY
     Route: 048
     Dates: start: 20110304
  4. LAMICTAL [Suspect]
     Indication: BIPOLAR DISORDER
     Dosage: 25MG PER DAY
     Route: 048
     Dates: start: 20110929, end: 20111012
  5. DESYREL [Concomitant]
     Dosage: 150MG PER DAY
     Route: 048
     Dates: start: 20110304
  6. LAMICTAL [Suspect]
     Dosage: 50MG PER DAY
     Route: 048
     Dates: start: 20111013, end: 20111028
  7. TOLEDOMIN [Concomitant]
     Dosage: 150MG PER DAY
     Route: 048
     Dates: start: 20110304

REACTIONS (7)
  - RASH [None]
  - INFLAMMATION [None]
  - PAPULE [None]
  - PIGMENTATION DISORDER [None]
  - RASH GENERALISED [None]
  - PRURITUS [None]
  - ERYTHEMA [None]
